FAERS Safety Report 20213696 (Version 6)
Quarter: 2022Q2

REPORT INFORMATION
  Report Type: Report from Study
  Country: US (occurrence: US)
  Receive Date: 20211221
  Receipt Date: 20220406
  Transmission Date: 20220720
  Serious: Yes (Death, Hospitalization, Other)
  Sender: FDA-Public Use
  Company Number: US-PFIZER INC-202101790662

PATIENT
  Age: 60 Year
  Sex: Female
  Weight: 77.9 kg

DRUGS (5)
  1. ENCORAFENIB [Suspect]
     Active Substance: ENCORAFENIB
     Indication: Metastatic malignant melanoma
     Dosage: 450 MG PER DAY (DAYS 1-28 OF EACH CYCLE)
     Route: 048
     Dates: start: 20211109, end: 20211206
  2. ENCORAFENIB [Suspect]
     Active Substance: ENCORAFENIB
     Dosage: 450 MG PER DAY (DAYS 1-28 OF EACH CYCLE)
     Route: 048
     Dates: start: 20211223, end: 20220106
  3. BINIMETINIB [Suspect]
     Active Substance: BINIMETINIB
     Indication: Metastatic malignant melanoma
     Dosage: 45 MG TWICE DAILY (DAYS 1-28 OF CYCLE)
     Route: 048
     Dates: start: 20211109, end: 20211206
  4. BINIMETINIB [Suspect]
     Active Substance: BINIMETINIB
     Dosage: 45 MG TWICE DAILY (DAYS 1-28 OF CYCLE)
     Route: 048
     Dates: start: 20211223, end: 20220118
  5. NIVOLUMAB [Suspect]
     Active Substance: NIVOLUMAB
     Indication: Metastatic malignant melanoma
     Dosage: 480 MG DAY 1 OF EACH CYCLE (CYCLE LENGTH = 28 DAYS)
     Route: 042
     Dates: start: 20211109, end: 20211109

REACTIONS (10)
  - Hypotension [Recovered/Resolved]
  - Acute respiratory failure [Recovered/Resolved]
  - Muscular weakness [Not Recovered/Not Resolved]
  - Dyspnoea [Recovered/Resolved]
  - Urinary tract infection [Not Recovered/Not Resolved]
  - Alanine aminotransferase increased [Not Recovered/Not Resolved]
  - Fatigue [Not Recovered/Not Resolved]
  - Encephalopathy [Fatal]
  - Rash maculo-papular [Not Recovered/Not Resolved]
  - Aspartate aminotransferase increased [Not Recovered/Not Resolved]

NARRATIVE: CASE EVENT DATE: 20211208
